FAERS Safety Report 8464669-7 (Version None)
Quarter: 2012Q2

REPORT INFORMATION
  Report Type: 
  Country: None (occurrence: None)
  Receive Date: 20120626
  Receipt Date: 20120614
  Transmission Date: 20120825
  Serious: Yes (Other)
  Sender: FDA-Public Use
  Company Number: CA-JNJFOC-20120607663

PATIENT
  Sex: Female
  Weight: 66 kg

DRUGS (1)
  1. REMICADE [Suspect]
     Indication: CROHN'S DISEASE
     Route: 042
     Dates: start: 20120101

REACTIONS (9)
  - NAUSEA [None]
  - FEELING HOT [None]
  - EXPRESSIVE LANGUAGE DISORDER [None]
  - SKIN DISCOLOURATION [None]
  - ARTHRALGIA [None]
  - HYPOAESTHESIA [None]
  - PARAESTHESIA [None]
  - HEADACHE [None]
  - CHILLS [None]
